FAERS Safety Report 9826154 (Version 2)
Quarter: 2014Q1

REPORT INFORMATION
  Report Type: Spontaneous
  Country: GB (occurrence: GB)
  Receive Date: 20140117
  Receipt Date: 20140130
  Transmission Date: 20141002
  Serious: Yes (Hospitalization, Other)
  Sender: FDA-Public Use
  Company Number: GB-009507513-1401GBR003867

PATIENT
  Age: 15 Year
  Sex: Female
  Weight: 9.89 kg

DRUGS (1)
  1. NEXPLANON [Suspect]
     Indication: CONTRACEPTION
     Dosage: UNK
     Route: 059
     Dates: start: 20131121

REACTIONS (10)
  - Epilepsy [Unknown]
  - Panic attack [Unknown]
  - Hypersensitivity [Unknown]
  - Anxiety [Unknown]
  - Weight increased [Unknown]
  - Mood swings [Unknown]
  - Lethargy [Unknown]
  - Rash macular [Unknown]
  - Mood altered [Unknown]
  - Vaginal haemorrhage [Unknown]
